FAERS Safety Report 5403238-X (Version None)
Quarter: 2007Q3

REPORT INFORMATION
  Report Type: 
  Country: None (occurrence: None)
  Receive Date: 20070727
  Receipt Date: 20070717
  Transmission Date: 20080115
  Serious: Yes (Other)
  Sender: FDA-Public Use
  Company Number: 016096

PATIENT
  Age: 14 Year
  Sex: Female
  Weight: 52.2 kg

DRUGS (3)
  1. TRAZODONE HCL [Suspect]
     Indication: DEPRESSION
     Dosage: 0.5 TABLET, QHS, ORAL
     Route: 048
     Dates: start: 20060124, end: 20070512
  2. TRAZODONE HCL [Suspect]
     Indication: INSOMNIA
     Dosage: 0.5 TABLET, QHS, ORAL
     Route: 048
     Dates: start: 20060124, end: 20070512
  3. ALBUTEROL [Concomitant]

REACTIONS (8)
  - DEHYDRATION [None]
  - ELECTROCARDIOGRAM QT PROLONGED [None]
  - FEELING ABNORMAL [None]
  - HYPOCALCAEMIA [None]
  - HYPOKALAEMIA [None]
  - PROTEIN TOTAL DECREASED [None]
  - SYNCOPE [None]
  - VOMITING [None]
